FAERS Safety Report 14426717 (Version 2)
Quarter: 2018Q1

REPORT INFORMATION
  Report Type: Spontaneous
  Country: US (occurrence: US)
  Receive Date: 20180123
  Receipt Date: 20180228
  Transmission Date: 20180509
  Serious: Yes (Hospitalization, Other)
  Sender: FDA-Public Use
  Company Number: US-GLAXOSMITHKLINE-US2018009477

PATIENT
  Sex: Male

DRUGS (6)
  1. LOSARTAN. [Concomitant]
     Active Substance: LOSARTAN
  2. ACITRETIN. [Suspect]
     Active Substance: ACITRETIN
     Indication: PSORIASIS
     Dosage: 25 MG, QD
     Route: 048
     Dates: start: 2015, end: 201801
  3. ROSUVASTATIN CALCIUM. [Concomitant]
     Active Substance: ROSUVASTATIN CALCIUM
  4. AMLODIPINE [Concomitant]
     Active Substance: AMLODIPINE BESYLATE
  5. ACITRETIN. [Suspect]
     Active Substance: ACITRETIN
     Dosage: 50 MG, UNK
     Dates: start: 201707, end: 201801
  6. ACITRETIN. [Suspect]
     Active Substance: ACITRETIN
     Dosage: 50 UNK, UNK
     Dates: start: 201707

REACTIONS (24)
  - Knee arthroplasty [Recovered/Resolved]
  - Paralysis [Unknown]
  - Vascular operation [Unknown]
  - Skin exfoliation [Unknown]
  - Onychomalacia [Recovering/Resolving]
  - Venous haemorrhage [Recovering/Resolving]
  - Hyperkeratosis [Unknown]
  - Drug ineffective [Unknown]
  - Fall [Not Recovered/Not Resolved]
  - Psoriasis [Not Recovered/Not Resolved]
  - Tremor [Not Recovered/Not Resolved]
  - Condition aggravated [Unknown]
  - Alopecia [Unknown]
  - Urticaria [Unknown]
  - Onychoclasis [Recovering/Resolving]
  - Hair colour changes [Recovered/Resolved]
  - Dry mouth [Unknown]
  - Anxiety [Unknown]
  - Temperature intolerance [Unknown]
  - Skin ulcer [Recovering/Resolving]
  - Feeling cold [Recovering/Resolving]
  - Madarosis [Unknown]
  - Skin abrasion [Unknown]
  - Nail disorder [Recovering/Resolving]

NARRATIVE: CASE EVENT DATE: 2017
